FAERS Safety Report 24538961 (Version 2)
Quarter: 2024Q4

REPORT INFORMATION
  Report Type: Spontaneous
  Country: FI (occurrence: FI)
  Receive Date: 20241023
  Receipt Date: 20241106
  Transmission Date: 20250115
  Serious: Yes (Other)
  Sender: TEVA
  Company Number: FI-TEVA-VS-3254587

PATIENT
  Age: 28 Year
  Sex: Female

DRUGS (1)
  1. MODAFINIL [Suspect]
     Active Substance: MODAFINIL
     Indication: Narcolepsy
     Route: 065
     Dates: start: 201402, end: 202102

REACTIONS (1)
  - Dermatitis acneiform [Recovered/Resolved]
